FAERS Safety Report 20393771 (Version 3)
Quarter: 2022Q1

REPORT INFORMATION
  Report Type: Spontaneous
  Country: PK (occurrence: PK)
  Receive Date: 20220128
  Receipt Date: 20220318
  Transmission Date: 20220423
  Serious: Yes (Other)
  Sender: FDA-Public Use
  Company Number: PK-PFIZER INC-202101599135

PATIENT
  Age: 30 Year
  Sex: Female

DRUGS (14)
  1. ENBREL [Suspect]
     Active Substance: ETANERCEPT
     Indication: Axial spondyloarthritis
     Dosage: 50 MG, WEEKLY
     Route: 058
     Dates: start: 20210922
  2. ENBREL [Suspect]
     Active Substance: ETANERCEPT
     Dosage: 50 MG EVERY 2WEEKS
     Route: 058
     Dates: start: 202203
  3. RAZODEX [Concomitant]
     Dosage: 60 MG
  4. RAZODEX [Concomitant]
     Dosage: 60 MG,1 + 0 + 0 + 0, BEFORE MEAL
  5. BROMAZEPAM [Concomitant]
     Active Substance: BROMAZEPAM
     Dosage: 3 MG, 0 + 0 + 0.5 + 0
  6. ZEEGAP [Concomitant]
     Dosage: 50 MG, 0 + 0 + 1 + 0 . AFTER MEAL
  7. ZEEGAP [Concomitant]
     Dosage: 75 MG
  8. STARCOX [Concomitant]
     Dosage: 60 MG
  9. PHLOGIN [DICLOFENAC SODIUM] [Concomitant]
     Dosage: 50 MG, 0 + 0 + 1 + 0 . AFTER MEAL
  10. PHLOGIN [DICLOFENAC SODIUM] [Concomitant]
     Dosage: UNK
  11. DULANE [Concomitant]
     Dosage: 30 MG, 1 + 0 + 0 + 0 . AFTER MEAL
  12. FERRICURE [FERRIC HYDROXIDE POLYMALTOSE COMPLEX] [Concomitant]
     Dosage: 0 + 1 + 0 + 0
  13. FERRICURE [FERRIC HYDROXIDE POLYMALTOSE COMPLEX] [Concomitant]
     Dosage: 50 MG
  14. VOLTRAL [DICLOFENAC SODIUM] [Concomitant]
     Dosage: UNK, 3X/DAY

REACTIONS (14)
  - Bursitis [Unknown]
  - Infection [Unknown]
  - Joint swelling [Unknown]
  - Haemoglobin urine present [Unknown]
  - Musculoskeletal stiffness [Unknown]
  - Arthralgia [Unknown]
  - Alanine aminotransferase increased [Unknown]
  - Back pain [Unknown]
  - Pain in extremity [Unknown]
  - Iron deficiency anaemia [Unknown]
  - Off label use [Unknown]
  - Pain [Unknown]
  - Iron binding capacity total increased [Unknown]
  - Blood iron decreased [Unknown]

NARRATIVE: CASE EVENT DATE: 20220301
